FAERS Safety Report 4489600-0 (Version None)
Quarter: 2004Q4

REPORT INFORMATION
  Report Type: 
  Country: None (occurrence: None)
  Receive Date: 20041101
  Receipt Date: 20040721
  Transmission Date: 20050328
  Serious: Yes (Other)
  Sender: FDA-Public Use
  Company Number: PHEH2004US07893

PATIENT
  Age: 68 Year
  Sex: Female
  Weight: 120 kg

DRUGS (4)
  1. GLEEVEC [Suspect]
     Indication: CHRONIC MYELOID LEUKAEMIA
     Dosage: 400 MG, QD
     Route: 048
     Dates: start: 20000701, end: 20031101
  2. VASERETIC [Concomitant]
     Indication: HYPERTENSION
  3. GLYBURIDE [Concomitant]
     Indication: DIABETES MELLITUS NON-INSULIN-DEPENDENT
  4. LOVASTATIN [Concomitant]
     Indication: HYPERCHOLESTEROLAEMIA

REACTIONS (5)
  - BLADDER MASS [None]
  - CHROMATURIA [None]
  - DYSURIA [None]
  - ENTEROVESICAL FISTULA [None]
  - URINARY TRACT INFECTION [None]
